FAERS Safety Report 8832114 (Version 2)
Quarter: 2014Q3

REPORT INFORMATION
  Report Type: Report from Study
  Country: US (occurrence: US)
  Receive Date: 20121009
  Receipt Date: 20140915
  Transmission Date: 20150326
  Serious: Yes (Other)
  Sender: FDA-Public Use
  Company Number: US-ROCHE-1130758

PATIENT
  Sex: Female

DRUGS (13)
  1. RITUXAN [Suspect]
     Active Substance: RITUXIMAB
     Route: 042
     Dates: start: 19980302
  2. MAALOX (CALCIUM CARBONATE) [Concomitant]
  3. EPOGEN [Concomitant]
     Active Substance: ERYTHROPOIETIN
  4. RITUXAN [Suspect]
     Active Substance: RITUXIMAB
     Route: 042
     Dates: start: 19980223
  5. PREDNISONE. [Concomitant]
     Active Substance: PREDNISONE
     Route: 065
     Dates: start: 19980209
  6. LASIX [Concomitant]
     Active Substance: FUROSEMIDE
  7. RITUXAN [Suspect]
     Active Substance: RITUXIMAB
     Route: 042
     Dates: start: 19980216
  8. FENTANYL. [Concomitant]
     Active Substance: FENTANYL
  9. MOTRIN [Concomitant]
     Active Substance: IBUPROFEN
  10. RITUXAN [Suspect]
     Active Substance: RITUXIMAB
     Indication: NON-HODGKIN^S LYMPHOMA
     Dosage: FOR FOUR DOSES
     Route: 042
     Dates: start: 19980209
  11. COUMADIN [Concomitant]
     Active Substance: WARFARIN SODIUM
  12. COMPAZINE [Concomitant]
     Active Substance: PROCHLORPERAZINE MALEATE
  13. NEUPOGEN [Concomitant]
     Active Substance: FILGRASTIM
     Route: 065

REACTIONS (14)
  - Abdominal discomfort [Unknown]
  - Herpes zoster [Unknown]
  - Disease recurrence [Unknown]
  - Fatigue [Unknown]
  - Kyphosis [Unknown]
  - Oedema [Unknown]
  - Abdominal mass [Unknown]
  - Weight decreased [Unknown]
  - Lymphadenopathy [Unknown]
  - Decreased appetite [Unknown]
  - Inguinal mass [Unknown]
  - Post herpetic neuralgia [Unknown]
  - Thrombocytopenia [Unknown]
  - Bone marrow failure [Unknown]
